FAERS Safety Report 6883187-0 (Version None)
Quarter: 2010Q3

REPORT INFORMATION
  Report Type: 
  Country: None (occurrence: None)
  Receive Date: 20100727
  Receipt Date: 20080331
  Transmission Date: 20110219
  Serious: Yes (Hospitalization, Disabling, Other)
  Sender: FDA-Public Use
  Company Number: US-PFIZER INC-2006114368

PATIENT
  Sex: Female
  Weight: 115.7 kg

DRUGS (4)
  1. CELEBREX [Suspect]
     Indication: RHEUMATOID ARTHRITIS
     Dates: start: 20020101
  2. CELEBREX [Suspect]
     Indication: PAIN
  3. VIOXX [Suspect]
     Indication: RHEUMATOID ARTHRITIS
     Dosage: ONE OR TWO TIMES
     Dates: start: 20010101
  4. VIOXX [Suspect]
     Indication: PAIN

REACTIONS (1)
  - TRANSIENT ISCHAEMIC ATTACK [None]
